APPROVED DRUG PRODUCT: BACLOFEN
Active Ingredient: BACLOFEN
Strength: 10MG
Dosage Form/Route: TABLET;ORAL
Application: A074584 | Product #001 | TE Code: AB
Applicant: YILING PHARMACEUTICAL LTD
Approved: Aug 19, 1996 | RLD: No | RS: No | Type: RX